FAERS Safety Report 12927656 (Version 1)
Quarter: 2016Q4

REPORT INFORMATION
  Report Type: Spontaneous
  Country: US (occurrence: None)
  Receive Date: 20161110
  Receipt Date: 20161110
  Transmission Date: 20170207
  Serious: Yes (Other)
  Sender: FDA-Public Use
  Company Number: CC-16-077

PATIENT
  Age: 43 Year
  Sex: Male
  Weight: 56.7 kg

DRUGS (2)
  1. WITCH HAZEL. [Concomitant]
     Active Substance: WITCH HAZEL
  2. HYDROCORTISONE CREAM USP, 2.5% [Suspect]
     Active Substance: HYDROCORTISONE
     Indication: HAEMORRHOIDS
     Dosage: FTU. PRESCRIBED QD; USED 3-4/DAY DAILY TOPICAL
     Route: 061
     Dates: start: 20161027, end: 20161030

REACTIONS (5)
  - Dysphagia [None]
  - Dizziness [None]
  - Wrong technique in product usage process [None]
  - Tremor [None]
  - Inappropriate schedule of drug administration [None]
